FAERS Safety Report 9857530 (Version 3)
Quarter: 2014Q1

REPORT INFORMATION
  Report Type: Report from Study
  Country: GB (occurrence: GB)
  Receive Date: 20140131
  Receipt Date: 20140212
  Transmission Date: 20141002
  Serious: Yes (Hospitalization, Other)
  Sender: FDA-Public Use
  Company Number: PHHO2014GB000751

PATIENT
  Sex: 0

DRUGS (6)
  1. CERTICAN [Suspect]
     Indication: LIVER TRANSPLANT
     Dosage: 0.9 MG, BID
     Route: 048
     Dates: start: 20131002, end: 20140103
  2. TACROLIMUS [Suspect]
     Indication: IMMUNOSUPPRESSION
     Dosage: 1 MG, BID
     Dates: start: 20130624, end: 20131218
  3. TACROLIMUS [Suspect]
     Dosage: 0.2 MG, BID
     Dates: start: 20140111
  4. PREDNISOLONE [Concomitant]
     Indication: IMMUNOSUPPRESSION
     Dosage: 1 MG, QD
     Dates: start: 20130624
  5. OMEPRAZOL [Concomitant]
     Indication: GASTROOESOPHAGEAL REFLUX DISEASE
     Dosage: 10 MG, QD
     Route: 048
     Dates: start: 20131213
  6. DOMPERIDONE [Concomitant]
     Indication: GASTROOESOPHAGEAL REFLUX DISEASE
     Dosage: 4.3 MG, QID
     Route: 048
     Dates: start: 20131217

REACTIONS (3)
  - Toxicity to various agents [Recovered/Resolved]
  - Pyrexia [Recovered/Resolved]
  - Mouth ulceration [Recovered/Resolved]
